FAERS Safety Report 11166720 (Version 1)
Quarter: 2015Q2

REPORT INFORMATION
  Report Type: Spontaneous
  Country: US (occurrence: US)
  Receive Date: 20150605
  Receipt Date: 20150605
  Transmission Date: 20150821
  Serious: No
  Sender: FDA-Public Use
  Company Number: US-JNJFOC-20150114565

PATIENT

DRUGS (1)
  1. STELARA [Suspect]
     Active Substance: USTEKINUMAB
     Indication: PSORIASIS
     Dosage: 2 DOSES (WEEK 0 AND 4)
     Route: 058
     Dates: start: 201411, end: 201412

REACTIONS (3)
  - Pharyngitis [Unknown]
  - Gastric disorder [Unknown]
  - Gastritis [Unknown]
